FAERS Safety Report 22869496 (Version 2)
Quarter: 2025Q2

REPORT INFORMATION
  Report Type: Spontaneous
  Country: CA (occurrence: CA)
  Receive Date: 20230826
  Receipt Date: 20250429
  Transmission Date: 20250717
  Serious: Yes (Hospitalization, Congenital Anomaly, Other)
  Sender: AUROBINDO
  Company Number: CA-AUROBINDO-AUR-APL-2023-054836

PATIENT
  Sex: Female

DRUGS (3)
  1. METFORMIN [Suspect]
     Active Substance: METFORMIN HYDROCHLORIDE
     Indication: Foetal exposure during pregnancy
     Route: 064
  2. METFORMIN [Suspect]
     Active Substance: METFORMIN HYDROCHLORIDE
     Indication: Type 2 diabetes mellitus
  3. VITAMIN D [Concomitant]
     Active Substance: VITAMIN D NOS
     Indication: Product used for unknown indication
     Dosage: 1000 INTERNATIONAL UNIT, ONCE A DAY
     Route: 065

REACTIONS (9)
  - Premature baby [Recovered/Resolved]
  - Alopecia scarring [Recovered/Resolved]
  - Cholangitis sclerosing [Recovered/Resolved]
  - Foetal exposure during pregnancy [Recovered/Resolved]
  - Hypotrichosis [Recovered/Resolved]
  - Ichthyosis [Recovered/Resolved]
  - Leukocyte vacuolisation [Recovered/Resolved]
  - Low birth weight baby [Recovered/Resolved]
  - Neonatal cholestasis [Recovered/Resolved]
